FAERS Safety Report 4372062-1 (Version None)
Quarter: 2004Q2

REPORT INFORMATION
  Report Type: 
  Country: None (occurrence: None)
  Receive Date: 20040602
  Receipt Date: 20040519
  Transmission Date: 20050107
  Serious: Yes (Disabling)
  Sender: FDA-Public Use
  Company Number: 2003-BP-04138BP

PATIENT
  Age: 72 Year
  Sex: Male

DRUGS (6)
  1. MICARDIS [Suspect]
     Indication: CARDIOVASCULAR DISORDER
     Route: 048
     Dates: start: 20030512, end: 20030520
  2. MICARDIS [Suspect]
     Indication: MYOCARDIAL INFARCTION
     Route: 048
     Dates: start: 20030512, end: 20030520
  3. MICARDIS [Suspect]
     Indication: PROPHYLAXIS
     Route: 048
     Dates: start: 20030512, end: 20030520
  4. RAMIPRIL [Suspect]
     Indication: CARDIOVASCULAR DISORDER
     Route: 048
     Dates: start: 20030512, end: 20030520
  5. RAMIPRIL [Suspect]
     Indication: MYOCARDIAL INFARCTION
     Route: 048
     Dates: start: 20030512, end: 20030520
  6. RAMIPRIL [Suspect]
     Indication: PROPHYLAXIS
     Route: 048
     Dates: start: 20030512, end: 20030520

REACTIONS (1)
  - IIIRD NERVE PARALYSIS [None]
